FAERS Safety Report 8304851-2 (Version None)
Quarter: 2012Q2

REPORT INFORMATION
  Report Type: 
  Country: None (occurrence: None)
  Receive Date: 20120423
  Receipt Date: 20120417
  Transmission Date: 20120825
  Serious: Yes (Other)
  Sender: FDA-Public Use
  Company Number: US-PFIZER INC-2012017971

PATIENT
  Sex: Female

DRUGS (1)
  1. LIPITOR [Suspect]
     Dosage: 80 MG, 1X/DAY
     Dates: start: 20000401

REACTIONS (4)
  - DEVICE OCCLUSION [None]
  - BLOOD PRESSURE INCREASED [None]
  - NERVOUSNESS [None]
  - STENT PLACEMENT [None]
